FAERS Safety Report 8435631-5 (Version None)
Quarter: 2012Q2

REPORT INFORMATION
  Report Type: 
  Country: None (occurrence: None)
  Receive Date: 20120614
  Receipt Date: 20120608
  Transmission Date: 20120825
  Serious: Yes (Other)
  Sender: FDA-Public Use
  Company Number: JP-PFIZER INC-2012002710

PATIENT
  Age: 65 Year
  Sex: Male

DRUGS (2)
  1. SUTENT [Suspect]
     Indication: RENAL CELL CARCINOMA
     Dosage: 37.5 MG, 1X/DAY
     Route: 048
     Dates: start: 20110810
  2. URSO 250 [Concomitant]

REACTIONS (3)
  - OEDEMA [None]
  - BLOOD BILIRUBIN INCREASED [None]
  - ASCITES [None]
